FAERS Safety Report 7946568-X (Version None)
Quarter: 2011Q4

REPORT INFORMATION
  Report Type: 
  Country: None (occurrence: None)
  Receive Date: 20111129
  Receipt Date: 20111122
  Transmission Date: 20120403
  Serious: Yes (Death)
  Sender: FDA-Public Use
  Company Number: US-CELGENEUS-163-21880-11113225

PATIENT
  Sex: Male

DRUGS (9)
  1. NOVOLIN 70/30 [Concomitant]
     Dosage: 70/30
     Route: 065
  2. ACETAMINOPHEN AND HYDROCODONE BITARTRATE [Concomitant]
     Route: 065
  3. CLONIDINE HCL [Concomitant]
     Route: 065
  4. CRESTOR [Concomitant]
     Route: 065
  5. GABAPENTIN [Concomitant]
     Route: 065
  6. BENICAR [Concomitant]
     Route: 065
  7. ALLOPURINOL [Concomitant]
     Route: 065
  8. LISINOPRIL [Concomitant]
     Route: 065
  9. REVLIMID [Suspect]
     Dosage: 25 MILLIGRAM
     Route: 048
     Dates: start: 20110727, end: 20110101

REACTIONS (1)
  - DEATH [None]
